FAERS Safety Report 10235722 (Version 7)
Quarter: 2014Q4

REPORT INFORMATION
  Report Type: Spontaneous
  Country: US (occurrence: US)
  Receive Date: 20140613
  Receipt Date: 20141218
  Transmission Date: 20150528
  Serious: Yes (Death, Hospitalization, Other)
  Sender: FDA-Public Use
  Company Number: US-009507513-1406USA007084

PATIENT
  Sex: Female
  Weight: 73.92 kg

DRUGS (1)
  1. JANUVIA [Suspect]
     Active Substance: SITAGLIPTIN PHOSPHATE
     Indication: TYPE 2 DIABETES MELLITUS
     Dosage: 100 MG, QD
     Route: 048
     Dates: start: 20070507, end: 20091124

REACTIONS (35)
  - Culture urine positive [Unknown]
  - Coronary arterial stent insertion [Unknown]
  - Bladder diverticulum [Unknown]
  - Gastrooesophageal reflux disease [Unknown]
  - Osteoarthritis [Unknown]
  - Metastases to liver [Unknown]
  - Pancreatitis chronic [Unknown]
  - Arthritis [Unknown]
  - Decreased appetite [Unknown]
  - Contusion [Unknown]
  - Nausea [Unknown]
  - Metastases to lymph nodes [Unknown]
  - Anxiety [Unknown]
  - Hypothyroidism [Unknown]
  - Muscle spasms [Unknown]
  - Pain in extremity [Unknown]
  - Benign breast lump removal [Unknown]
  - Pancreatic carcinoma metastatic [Fatal]
  - Pancreatectomy [Unknown]
  - Diverticulum intestinal [Unknown]
  - Large intestine polyp [Unknown]
  - Back pain [Not Recovered/Not Resolved]
  - Headache [Unknown]
  - Arthralgia [Unknown]
  - Splenectomy [Unknown]
  - Metastases to abdominal cavity [Unknown]
  - Myocardial infarction [Unknown]
  - Bradycardia [Unknown]
  - Abdominal pain upper [Unknown]
  - Splenic granuloma [Unknown]
  - Osteoporosis [Unknown]
  - Cataract [Unknown]
  - Sinusitis [Unknown]
  - Hiatus hernia [Unknown]
  - Respiratory disorder [Unknown]

NARRATIVE: CASE EVENT DATE: 2008
